FAERS Safety Report 19497556 (Version 2)
Quarter: 2024Q1

REPORT INFORMATION
  Report Type: Spontaneous
  Country: US (occurrence: US)
  Receive Date: 20210706
  Receipt Date: 20240228
  Transmission Date: 20240410
  Serious: No
  Sender: FDA-Public Use
  Company Number: US-EVOFEM BIOSCIENCES, INC.-2021US002614

PATIENT

DRUGS (3)
  1. PHEXXI [Suspect]
     Active Substance: CITRIC ACID MONOHYDRATE\LACTIC ACID, L-\POTASSIUM BITARTRATE
     Indication: Contraception
     Dosage: 5 G AS DIRECTED
     Route: 067
     Dates: start: 20201124
  2. IRON [Concomitant]
     Active Substance: IRON
     Indication: Anaemia
     Dosage: 325 MG AS DIRECTED 0 MG TWICE A DAY
     Route: 048
  3. VITAMIN D SANDOZ [Concomitant]
     Indication: Vitamin D deficiency
     Dosage: UNK
     Route: 048

REACTIONS (3)
  - Pregnancy [Unknown]
  - Drug ineffective [Unknown]
  - Product use issue [Unknown]
